FAERS Safety Report 5558552-4 (Version None)
Quarter: 2007Q4

REPORT INFORMATION
  Report Type: 
  Country: None (occurrence: None)
  Receive Date: 20071214
  Receipt Date: 20070831
  Transmission Date: 20080405
  Serious: Yes (Hospitalization)
  Sender: FDA-Public Use
  Company Number: US-ABBOTT-07P-163-0415769-00

PATIENT
  Sex: Male
  Weight: 70.824 kg

DRUGS (2)
  1. HUMIRA [Suspect]
     Indication: CROHN'S DISEASE
     Route: 058
     Dates: start: 20070815
  2. HUMIRA [Suspect]

REACTIONS (1)
  - NEPHROLITHIASIS [None]
